FAERS Safety Report 16348786 (Version 2)
Quarter: 2019Q2

REPORT INFORMATION
  Report Type: Spontaneous
  Country: CN (occurrence: CN)
  Receive Date: 20190523
  Receipt Date: 20190531
  Transmission Date: 20190711
  Serious: Yes (Other)
  Sender: FDA-Public Use
  Company Number: CN-BRISTOL-MYERS SQUIBB COMPANY-BMS-2019-048351

PATIENT
  Age: 52 Year
  Sex: Male

DRUGS (3)
  1. BARACLUDE [Suspect]
     Active Substance: ENTECAVIR
     Indication: HEPATITIS B
     Dosage: 0.5 MILLIGRAM, QD
     Route: 048
     Dates: start: 2014
  2. ASPIRIN. [Suspect]
     Active Substance: ASPIRIN
     Indication: PRODUCT USED FOR UNKNOWN INDICATION
     Dosage: UNK
     Route: 065
     Dates: start: 201709
  3. ATORVASTATIN [Suspect]
     Active Substance: ATORVASTATIN
     Indication: PRODUCT USED FOR UNKNOWN INDICATION
     Dosage: UNK
     Route: 065
     Dates: start: 201709

REACTIONS (5)
  - Coronary artery disease [Unknown]
  - Fatigue [Unknown]
  - Dizziness [Unknown]
  - Weight decreased [Unknown]
  - Potentiating drug interaction [Unknown]

NARRATIVE: CASE EVENT DATE: 201709
